FAERS Safety Report 6261638-2 (Version None)
Quarter: 2009Q3

REPORT INFORMATION
  Report Type: 
  Country: None (occurrence: None)
  Receive Date: 20090707
  Receipt Date: 20090707
  Transmission Date: 20100115
  Serious: Yes (Hospitalization)
  Sender: FDA-Public Use
  Company Number: None

PATIENT
  Sex: Female
  Weight: 56.1 kg

DRUGS (3)
  1. CISPLATIN [Suspect]
     Dosage: 125 MG
  2. CISPLATIN [Suspect]
     Dosage: 125 MG
  3. ETOPOSIDE [Suspect]
     Dosage: 468 MG

REACTIONS (2)
  - CHOLECYSTITIS ACUTE [None]
  - DEHYDRATION [None]
